FAERS Safety Report 24905760 (Version 1)
Quarter: 2025Q1

REPORT INFORMATION
  Report Type: Report from Study
  Country: US (occurrence: US)
  Receive Date: 20250130
  Receipt Date: 20250130
  Transmission Date: 20250408
  Serious: No
  Sender: HRA PHARMA
  Company Number: US-ORG100014127-2024000106

PATIENT
  Age: 75 Year
  Sex: Male

DRUGS (22)
  1. METOPIRONE [Suspect]
     Active Substance: METYRAPONE
     Indication: Pituitary-dependent Cushing^s syndrome
     Dosage: TAKE 250MG 4 TIME4 DAILY
     Route: 048
     Dates: start: 20240321
  2. METOPIRONE [Suspect]
     Active Substance: METYRAPONE
     Indication: Pituitary-dependent Cushing^s syndrome
     Dosage: PATIENT STARTED 3 CAPSULE
     Route: 048
  3. METOPIRONE [Suspect]
     Active Substance: METYRAPONE
     Indication: Pituitary-dependent Cushing^s syndrome
     Dosage: 3 CAPSULES 3 TIMES DAILY
     Route: 048
  4. LYSODREN [Concomitant]
     Active Substance: MITOTANE
     Indication: Product used for unknown indication
     Dosage: TAKE 1 TABLET BY MOUTH TWICE DAILY
     Route: 048
     Dates: start: 20240321
  5. LYSODREN [Concomitant]
     Active Substance: MITOTANE
     Indication: Product used for unknown indication
     Dosage: TAKE 1 TABLET BY MOUTH THREE TIME DAILY
  6. LYSODREN [Concomitant]
     Active Substance: MITOTANE
     Indication: Product used for unknown indication
     Dosage: 1 TABLET IN THE MORNING, THEN 1 IN THE EVENING AND 2 AT BEDTIME
  7. LYSODREN [Concomitant]
     Active Substance: MITOTANE
     Indication: Product used for unknown indication
     Dosage: 2 TABLET THREE TIME DAILY
  8. atenolol tablet 25mg [Concomitant]
     Indication: Product used for unknown indication
  9. Curcumin 95 capsule 500mg [Concomitant]
     Indication: Product used for unknown indication
  10. Eliquis ST P tablet 5mg [Concomitant]
     Indication: Product used for unknown indication
  11. hydrochlorothiazide tablet 25 mg [Concomitant]
     Indication: Product used for unknown indication
  12. losartan potassium tablet 100MG [Concomitant]
     Indication: Product used for unknown indication
  13. magnesium tablet 30mg [Concomitant]
     Indication: Product used for unknown indication
  14. multivitamin capsule daily [Concomitant]
     Indication: Product used for unknown indication
  15. OLANZAPINE [Concomitant]
     Active Substance: OLANZAPINE
     Indication: Product used for unknown indication
  16. Ondansetron tablet 8mg [Concomitant]
     Indication: Product used for unknown indication
  17. potassium chloride capsule 10MEQ ER [Concomitant]
     Indication: Product used for unknown indication
  18. Probiotic capsule 250MG [Concomitant]
     Indication: Product used for unknown indication
  19. prochlorperazine tablet 10 mg [Concomitant]
     Indication: Product used for unknown indication
  20. Spironolactone Hydrochlorothiazide 25/5 [Concomitant]
     Indication: Product used for unknown indication
  21. spironolactone tablet 25mg [Concomitant]
     Indication: Product used for unknown indication
  22. Vitamin D3 CHW 1000UNIT [Concomitant]
     Indication: Product used for unknown indication

REACTIONS (2)
  - Abdominal distension [Not Recovered/Not Resolved]
  - Off label use [Not Recovered/Not Resolved]

NARRATIVE: CASE EVENT DATE: 20240325
